FAERS Safety Report 7323956-6 (Version None)
Quarter: 2011Q1

REPORT INFORMATION
  Report Type: 
  Country: None (occurrence: None)
  Receive Date: 20110301
  Receipt Date: 20110224
  Transmission Date: 20110831
  Serious: Yes (Hospitalization)
  Sender: FDA-Public Use
  Company Number: B0701908A

PATIENT
  Sex: Male

DRUGS (6)
  1. DIDANOSINE [Suspect]
     Indication: HIV INFECTION
     Dates: start: 19970101, end: 20050101
  2. NEVIRAPINE [Suspect]
     Indication: HIV INFECTION
     Dates: start: 19970101
  3. LAMIVUDINE-HIV [Suspect]
     Indication: HIV INFECTION
     Dates: start: 20050101, end: 20090101
  4. TRUVADA [Suspect]
     Indication: HIV INFECTION
     Dates: start: 20090101
  5. ZIDOVUDINE [Suspect]
     Indication: HIV INFECTION
     Dates: start: 19970101, end: 20050101
  6. TENOFOVIR [Suspect]
     Indication: HIV INFECTION
     Dates: start: 20050101, end: 20090101

REACTIONS (3)
  - NODULAR REGENERATIVE HYPERPLASIA [None]
  - HAEMATEMESIS [None]
  - OESOPHAGEAL VARICES HAEMORRHAGE [None]
